FAERS Safety Report 4516209-2 (Version None)
Quarter: 2004Q4

REPORT INFORMATION
  Report Type: 
  Country: None (occurrence: None)
  Receive Date: 20041130
  Receipt Date: 20041130
  Transmission Date: 20050328
  Serious: Yes (Hospitalization)
  Sender: FDA-Public Use
  Company Number: None

PATIENT
  Sex: Female

DRUGS (9)
  1. WARFARIN SODIUM [Suspect]
     Indication: ANTIPHOSPHOLIPID ANTIBODIES POSITIVE
     Dosage: SEE IMAGE
     Route: 048
     Dates: start: 20030101, end: 20040717
  2. WARFARIN SODIUM [Suspect]
     Indication: ATRIAL FIBRILLATION
     Dosage: SEE IMAGE
     Route: 048
     Dates: start: 20030101, end: 20040717
  3. DOCUSATE [Concomitant]
  4. XOPENOX [Concomitant]
  5. PAROXETINE [Concomitant]
  6. LEVAQUIN [Concomitant]
  7. ADVAIR DISKUS 100/50 [Concomitant]
  8. ACETAMINOPHEN [Concomitant]
  9. LORAZEPAM [Concomitant]

REACTIONS (6)
  - CHRONIC OBSTRUCTIVE AIRWAYS DISEASE EXACERBATED [None]
  - ECCHYMOSIS [None]
  - GASTROINTESTINAL HAEMORRHAGE [None]
  - INTERNATIONAL NORMALISED RATIO INCREASED [None]
  - PNEUMONIA [None]
  - RENAL FAILURE [None]
